FAERS Safety Report 7005871-0 (Version None)
Quarter: 2010Q3

REPORT INFORMATION
  Report Type: 
  Country: None (occurrence: None)
  Receive Date: 20100921
  Receipt Date: 20100913
  Transmission Date: 20110219
  Serious: Yes (Hospitalization)
  Sender: FDA-Public Use
  Company Number: CH-KINGPHARMUSA00001-K201000650

PATIENT
  Sex: Female

DRUGS (9)
  1. FLECTOR [Suspect]
     Indication: ARTHRALGIA
     Dosage: 1 PATCH, BID
     Route: 061
     Dates: start: 20100201, end: 20100318
  2. FLECTOR [Suspect]
     Indication: OSTEOARTHRITIS
  3. PROTELOS [Suspect]
     Indication: OSTEOPOROSIS
     Dosage: 2 G, QD
     Route: 048
     Dates: start: 20100126, end: 20100318
  4. ATEPADENE [Suspect]
     Indication: BACK PAIN
     Dosage: 1 DF, TID
     Route: 048
     Dates: start: 20100201, end: 20100328
  5. ATEPADENE [Suspect]
     Indication: OSTEOPOROSIS
  6. MIOREL [Concomitant]
     Dosage: 3 DF, UNK
     Route: 048
  7. SIMETICONE [Concomitant]
     Dosage: 3 DF, UNK
     Route: 048
  8. IXPRIM [Concomitant]
     Dosage: UNK
  9. ACETAMINOPHEN [Concomitant]

REACTIONS (9)
  - CHOLESTASIS [None]
  - DRUG RASH WITH EOSINOPHILIA AND SYSTEMIC SYMPTOMS [None]
  - EOSINOPHILIA [None]
  - INFLAMMATION [None]
  - LIVER INJURY [None]
  - PROTEINURIA [None]
  - RASH [None]
  - RASH ERYTHEMATOUS [None]
  - RENAL FAILURE ACUTE [None]
